FAERS Safety Report 15753646 (Version 2)
Quarter: 2019Q1

REPORT INFORMATION
  Report Type: Spontaneous
  Country: NO (occurrence: NO)
  Receive Date: 20181222
  Receipt Date: 20190110
  Transmission Date: 20190417
  Serious: No
  Sender: FDA-Public Use
  Company Number: NO-009507513-1812NOR009154

PATIENT
  Age: 63 Year
  Sex: Female

DRUGS (10)
  1. ERYMAX [Suspect]
     Active Substance: ERYTHROMYCIN
     Indication: RESPIRATORY TRACT INFECTION
     Dosage: 500 MG, 3X/DAY
  2. ALBYL-E [Concomitant]
     Active Substance: ASPIRIN\MAGNESIUM OXIDE
     Dosage: 75 MG, QD
  3. FELODIPINE. [Concomitant]
     Active Substance: FELODIPINE
     Dosage: 10 MG, QD
     Route: 048
  4. GLUCOPHAGE [Concomitant]
     Active Substance: METFORMIN HYDROCHLORIDE
     Dosage: 1000 MG, BID
  5. SIMVASTATIN. [Suspect]
     Active Substance: SIMVASTATIN
     Dosage: 20 MG, QD
  6. NEURONTIN [Concomitant]
     Active Substance: GABAPENTIN
     Dosage: 600 MG, TID
  7. MICARDIS PLUS [Concomitant]
     Active Substance: HYDROCHLOROTHIAZIDE\TELMISARTAN
     Dosage: 12.5/80 MG, 1X/DAY
  8. ATENOLOL. [Concomitant]
     Active Substance: ATENOLOL
     Dosage: 50 MG, 1X/DAY
  9. MAREVAN [Concomitant]
     Active Substance: WARFARIN SODIUM
     Dosage: 2.5 MG AFTER LIST
  10. INSULATARD (INSULIN, ISOPHANE) [Concomitant]
     Active Substance: INSULIN HUMAN
     Dosage: 18 + 16 IU

REACTIONS (1)
  - Contraindicated product administered [Unknown]
